FAERS Safety Report 4558367-X (Version None)
Quarter: 2005Q1

REPORT INFORMATION
  Report Type: 
  Country: None (occurrence: None)
  Receive Date: 20050121
  Receipt Date: 20050118
  Transmission Date: 20050727
  Serious: Yes (Hospitalization)
  Sender: FDA-Public Use
  Company Number: US-MERCK-0501USA02797

PATIENT
  Age: 85 Year
  Sex: Female

DRUGS (10)
  1. FOSAMAX [Suspect]
     Indication: OSTEOPOROSIS
     Route: 048
  2. NEXIUM [Concomitant]
     Route: 065
  3. PLAVIX [Concomitant]
     Route: 065
  4. LASIX [Concomitant]
     Route: 065
  5. POTASSIUM (UNSPECIFIED) [Concomitant]
     Route: 065
  6. LANOXIN [Concomitant]
     Route: 065
  7. SYNTHROID [Concomitant]
     Route: 065
  8. ASPIRIN [Concomitant]
     Route: 065
  9. COREG [Concomitant]
     Route: 065
  10. CAPOTEN [Concomitant]
     Route: 065

REACTIONS (1)
  - MYOCARDIAL INFARCTION [None]
